FAERS Safety Report 5658895-X (Version None)
Quarter: 2008Q1

REPORT INFORMATION
  Report Type: 
  Country: None (occurrence: None)
  Receive Date: 20080310
  Receipt Date: 20070427
  Transmission Date: 20080703
  Serious: No
  Sender: FDA-Public Use
  Company Number: US-BAYER-200711344BCC

PATIENT
  Age: 13 Year
  Sex: Female
  Weight: 57 kg

DRUGS (3)
  1. ALEVE [Suspect]
     Indication: HEADACHE
     Dosage: TOTAL DAILY DOSE: 1100 MG  UNIT DOSE: 220 MG
     Route: 048
     Dates: start: 20070427
  2. ASPIRIN [Suspect]
     Indication: HEADACHE
     Dosage: TOTAL DAILY DOSE: 1625 MG  UNIT DOSE: 325 MG
     Route: 048
     Dates: start: 20070427
  3. MOTRIN [Suspect]
     Indication: HEADACHE
     Route: 048
     Dates: start: 20070427

REACTIONS (4)
  - DIZZINESS [None]
  - MENTAL STATUS CHANGES [None]
  - PRESYNCOPE [None]
  - SOMNOLENCE [None]
